FAERS Safety Report 11930055 (Version 3)
Quarter: 2016Q1

REPORT INFORMATION
  Report Type: Spontaneous
  Country: JP (occurrence: JP)
  Receive Date: 20160120
  Receipt Date: 20160318
  Transmission Date: 20160526
  Serious: Yes (Other)
  Sender: FDA-Public Use
  Company Number: JP-BEH-2016058109

PATIENT
  Sex: Male
  Weight: 54.6 kg

DRUGS (1)
  1. SANGLOPOR I.V. INFUSION 2.5 G [Suspect]
     Active Substance: HUMAN IMMUNOGLOBULIN G
     Indication: BRUTON^S AGAMMAGLOBULINAEMIA
     Route: 042

REACTIONS (4)
  - Respiratory tract infection [Unknown]
  - Malaise [Unknown]
  - Otitis media [Unknown]
  - Sinusitis [Unknown]
